FAERS Safety Report 5578354-2 (Version None)
Quarter: 2007Q4

REPORT INFORMATION
  Report Type: 
  Country: None (occurrence: None)
  Receive Date: 20071231
  Receipt Date: 20071225
  Transmission Date: 20080405
  Serious: Yes (Life-Threatening, Other)
  Sender: FDA-Public Use
  Company Number: JP-BRISTOL-MYERS SQUIBB COMPANY-13955877

PATIENT
  Age: 55 Year
  Sex: Male

DRUGS (8)
  1. BARACLUDE [Suspect]
     Indication: HEPATIC CIRRHOSIS
     Route: 048
     Dates: start: 20070302
  2. URSO 250 [Concomitant]
     Route: 048
     Dates: start: 20010914
  3. ARTIST [Concomitant]
     Route: 048
     Dates: start: 20020304
  4. AMINOLEBAN [Concomitant]
     Route: 048
     Dates: start: 20060320
  5. ZYLORIC [Concomitant]
     Route: 048
     Dates: start: 20010914
  6. LASIX [Concomitant]
     Route: 048
     Dates: start: 20050531
  7. ALDACTONE [Concomitant]
     Route: 048
     Dates: start: 20011016
  8. TAKEPRON [Concomitant]
     Route: 048
     Dates: start: 20060320

REACTIONS (1)
  - HEPATIC NEOPLASM MALIGNANT [None]
